FAERS Safety Report 8007318-4 (Version None)
Quarter: 2011Q4

REPORT INFORMATION
  Report Type: 
  Country: None (occurrence: None)
  Receive Date: 20111216
  Receipt Date: 20111130
  Transmission Date: 20120403
  Serious: Yes (Other)
  Sender: FDA-Public Use
  Company Number: 2011028331

PATIENT
  Age: 69 Year
  Sex: Female
  Weight: 68.0396 kg

DRUGS (33)
  1. HIZENTRA [Suspect]
     Indication: IMMUNODEFICIENCY COMMON VARIABLE
     Dosage: (9 G 1X/WEEK, 1 GM 5ML VIAL; 45 ML IN MULTIPLE SITES SUBCUTANEOUS), (4 GM 20 ML VIAL,) (1 GM 5 ML VI
     Route: 058
     Dates: start: 20110318
  2. HIZENTRA [Suspect]
     Indication: IMMUNODEFICIENCY COMMON VARIABLE
     Dosage: (9 G 1X/WEEK, 1 GM 5ML VIAL; 45 ML IN MULTIPLE SITES SUBCUTANEOUS), (4 GM 20 ML VIAL,) (1 GM 5 ML VI
     Route: 058
     Dates: start: 20110318
  3. HIZENTRA [Suspect]
     Indication: IMMUNODEFICIENCY COMMON VARIABLE
     Dosage: (9 G 1X/WEEK, 1 GM 5ML VIAL; 45 ML IN MULTIPLE SITES SUBCUTANEOUS), (4 GM 20 ML VIAL,) (1 GM 5 ML VI
     Route: 058
     Dates: start: 20110415
  4. HIZENTRA [Suspect]
     Indication: IMMUNODEFICIENCY COMMON VARIABLE
     Dosage: (9 G 1X/WEEK, 1 GM 5ML VIAL; 45 ML IN MULTIPLE SITES SUBCUTANEOUS), (4 GM 20 ML VIAL,) (1 GM 5 ML VI
     Route: 058
     Dates: start: 20110318
  5. HIZENTRA [Suspect]
     Indication: IMMUNODEFICIENCY COMMON VARIABLE
     Dosage: (9 G 1X/WEEK, 1 GM 5ML VIAL; 45 ML IN MULTIPLE SITES SUBCUTANEOUS), (4 GM 20 ML VIAL,) (1 GM 5 ML VI
     Route: 058
     Dates: start: 20110415
  6. HIZENTRA [Suspect]
     Indication: IMMUNODEFICIENCY COMMON VARIABLE
     Dosage: (9 G 1X/WEEK, 1 GM 5ML VIAL; 45 ML IN MULTIPLE SITES SUBCUTANEOUS), (4 GM 20 ML VIAL,) (1 GM 5 ML VI
     Route: 058
     Dates: start: 20110318
  7. HIZENTRA [Suspect]
     Indication: IMMUNODEFICIENCY COMMON VARIABLE
     Dosage: (9 G 1X/WEEK, 1 GM 5ML VIAL; 45 ML IN MULTIPLE SITES SUBCUTANEOUS), (4 GM 20 ML VIAL,) (1 GM 5 ML VI
     Route: 058
     Dates: start: 20110318
  8. XANAX [Concomitant]
  9. ADVAIR DISKUS 100/50 [Concomitant]
  10. OXYCODONE HCL [Concomitant]
  11. TOPAMAX [Concomitant]
  12. HIZENTRA [Suspect]
  13. AROMASIN [Concomitant]
  14. ZITHROMAX [Concomitant]
  15. CLONAZEPAM [Concomitant]
  16. ROBITUSSIN DM (ROBITUSSIN  /00288801/) [Concomitant]
  17. AVELOX [Concomitant]
  18. SINGULAIR [Concomitant]
  19. HIZENTRA [Suspect]
  20. LEXAPRO [Concomitant]
  21. NOVOLOG [Concomitant]
  22. ALBUTEROL [Concomitant]
  23. IMITREX [Concomitant]
  24. HIZENTRA [Suspect]
  25. HIZENTRA [Suspect]
  26. HIZENTRA [Suspect]
  27. DOXYCYCLINE [Concomitant]
  28. ASPIRIN [Concomitant]
  29. AMBIEN [Concomitant]
  30. RELPAX [Concomitant]
  31. NASONEX [Concomitant]
  32. PRAVASTATIN [Concomitant]
  33. SLOW MAG (MAGNESIUM CHLORIDE) ANHYDROUS) [Concomitant]

REACTIONS (4)
  - RETCHING [None]
  - PURULENCE [None]
  - DIARRHOEA [None]
  - INFUSION SITE REACTION [None]
